FAERS Safety Report 5087102-4 (Version None)
Quarter: 2006Q3

REPORT INFORMATION
  Report Type: 
  Country: None (occurrence: None)
  Receive Date: 20060821
  Receipt Date: 20060807
  Transmission Date: 20061208
  Serious: Yes (Other)
  Sender: FDA-Public Use
  Company Number: 2006097238

PATIENT
  Age: 66 Year
  Sex: Female
  Weight: 70 kg

DRUGS (7)
  1. GABAPENTIN [Suspect]
     Indication: PAIN
     Dosage: ORAL
     Route: 048
     Dates: start: 20051101, end: 20060210
  2. PREGABALIN (PREGABALIN) [Suspect]
     Indication: PAIN
     Dosage: 150 MG (75 MG, 2 IN 1 D), ORAL
     Route: 048
     Dates: start: 20060210, end: 20060224
  3. AZITHROMYCIN [Concomitant]
  4. BENDROFLUAZIDE (BENDROFLUMETHIAZIDE) [Concomitant]
  5. CODEINE [Concomitant]
  6. LATANOPROST [Concomitant]
  7. ACETAMINOPHEN [Concomitant]

REACTIONS (5)
  - DEPRESSION [None]
  - DIZZINESS [None]
  - HYPERHIDROSIS [None]
  - SLEEP DISORDER [None]
  - SUICIDAL IDEATION [None]
